FAERS Safety Report 20050248 (Version 1)
Quarter: 2021Q4

REPORT INFORMATION
  Report Type: Spontaneous
  Country: US (occurrence: US)
  Receive Date: 20211109
  Receipt Date: 20211109
  Transmission Date: 20220303
  Serious: No
  Sender: FDA-Public Use
  Company Number: US-BAUSCH-BL-2021-036828

PATIENT
  Sex: Female

DRUGS (1)
  1. VITRASE [Suspect]
     Active Substance: HYALURONIDASE, OVINE
     Indication: Skin wrinkling
     Route: 065
     Dates: start: 202109

REACTIONS (1)
  - Application site swelling [Recovering/Resolving]

NARRATIVE: CASE EVENT DATE: 20210101
